FAERS Safety Report 8246296-X (Version None)
Quarter: 2012Q1

REPORT INFORMATION
  Report Type: 
  Country: None (occurrence: None)
  Receive Date: 20120329
  Receipt Date: 20120329
  Transmission Date: 20120608
  Serious: Yes (Hospitalization)
  Sender: FDA-Public Use
  Company Number: None

PATIENT

DRUGS (3)
  1. RIDAFOROLIMUS [Suspect]
     Indication: MALIGNANT PERITONEAL NEOPLASM
     Dosage: 10 MG PO
     Route: 048
     Dates: start: 20120319, end: 20120323
  2. PACLITAXEL [Suspect]
     Indication: MALIGNANT PERITONEAL NEOPLASM
     Dosage: 175 MG/M2
     Dates: start: 20120319, end: 20120319
  3. CARBOPLATIN [Suspect]
     Indication: MALIGNANT PERITONEAL NEOPLASM
     Dosage: AUC5
     Dates: start: 20120319, end: 20120319

REACTIONS (8)
  - DYSPNOEA [None]
  - WHITE BLOOD CELL COUNT DECREASED [None]
  - HAEMOGLOBIN DECREASED [None]
  - CHEST PAIN [None]
  - BLOOD SODIUM DECREASED [None]
  - PLEURAL EFFUSION [None]
  - PLATELET COUNT DECREASED [None]
  - BLOOD ALKALINE PHOSPHATASE INCREASED [None]
